FAERS Safety Report 12406585 (Version 6)
Quarter: 2021Q4

REPORT INFORMATION
  Report Type: Report from Study
  Country: US (occurrence: US)
  Receive Date: 20160526
  Receipt Date: 20211021
  Transmission Date: 20220303
  Serious: Yes (Hospitalization)
  Sender: FDA-Public Use
  Company Number: US-ROCHE-1761232

PATIENT
  Age: 65 Year
  Sex: Female
  Weight: 111.9 kg

DRUGS (21)
  1. POLATUZUMAB VEDOTIN [Suspect]
     Active Substance: POLATUZUMAB VEDOTIN
     Indication: Follicle centre lymphoma, follicular grade I, II, III recurrent
     Dosage: MOST RECENT DOSE PRIOR TO EVENT ONSET: 05/MAY/2016 AT 17:58, 184 MG
     Route: 042
     Dates: start: 20160211
  2. OBINUTUZUMAB [Suspect]
     Active Substance: OBINUTUZUMAB
     Indication: Follicle centre lymphoma, follicular grade I, II, III recurrent
     Dosage: MOST RECENT DOSE PRIOR TO EVENT ONSET: 05/MAY/2016 AT 14:20, 1000 MG?AS PER PROTOCOL ON DAY 1, 8, 15
     Route: 042
     Dates: start: 20160210
  3. BENDAMUSTINE [Suspect]
     Active Substance: BENDAMUSTINE
     Indication: Follicle centre lymphoma, follicular grade I, II, III recurrent
     Dosage: MOST RECENT DOSE PRIOR TO EVENT ONSET: 06/MAY/2016 AT 11:02, 186 MG?AS PER PROTOCOL ON DAY 2,3 OF CY
     Route: 042
     Dates: start: 20160211
  4. ALBUTEROL [Concomitant]
     Active Substance: ALBUTEROL
     Indication: Rhinitis allergic
     Dates: start: 20141111
  5. NEUPOGEN [Concomitant]
     Active Substance: FILGRASTIM
  6. DURAGESIC [Concomitant]
     Active Substance: FENTANYL
     Indication: Pain
     Dates: start: 20120403
  7. FERROUS SULFATE [Concomitant]
     Active Substance: FERROUS SULFATE
     Dates: start: 20120403
  8. GABAPENTIN [Concomitant]
     Active Substance: GABAPENTIN
     Dates: start: 20070705
  9. HYDROCHLOROTHIAZIDE\TRIAMTERENE [Concomitant]
     Active Substance: HYDROCHLOROTHIAZIDE\TRIAMTERENE
     Indication: Hypertension
     Dates: start: 20120726
  10. LEVOTHYROXINE [Concomitant]
     Active Substance: LEVOTHYROXINE
     Indication: Hypothyroidism
     Dates: start: 20120130
  11. MAXALT [Concomitant]
     Active Substance: RIZATRIPTAN BENZOATE
     Indication: Migraine
     Dates: start: 20121022
  12. PERCOCET [Concomitant]
     Active Substance: ACETAMINOPHEN\OXYCODONE HYDROCHLORIDE
     Indication: Back pain
     Dates: start: 20060607
  13. PRILOSEC [Concomitant]
     Active Substance: OMEPRAZOLE MAGNESIUM
     Indication: Gastrooesophageal reflux disease
     Dates: start: 20150902, end: 20160522
  14. RANITIDINE [Concomitant]
     Active Substance: RANITIDINE
     Indication: Gastrooesophageal reflux disease
     Dates: start: 20110721
  15. TRAZODONE [Concomitant]
     Active Substance: TRAZODONE HYDROCHLORIDE
     Indication: Anxiety
     Dates: start: 20110629
  16. VALSARTAN [Concomitant]
     Active Substance: VALSARTAN
     Indication: Hypertension
     Dates: start: 20140716
  17. VENLAFAXINE [Concomitant]
     Active Substance: VENLAFAXINE HYDROCHLORIDE
     Indication: Depression
     Dates: start: 20120510
  18. WELLBUTRIN [Concomitant]
     Active Substance: BUPROPION HYDROCHLORIDE
     Indication: Depression
     Dates: start: 20101010
  19. ZOFRAN [Concomitant]
     Active Substance: ONDANSETRON HYDROCHLORIDE
     Indication: Nausea
     Dates: start: 20160128
  20. MIRALAX [Concomitant]
     Active Substance: POLYETHYLENE GLYCOL 3350
     Indication: Constipation
     Dates: start: 20150902
  21. FLONASE [Concomitant]
     Active Substance: FLUTICASONE PROPIONATE
     Indication: Rhinitis allergic
     Dates: start: 20150902

REACTIONS (1)
  - Hypoxia [Recovered/Resolved]

NARRATIVE: CASE EVENT DATE: 20160518
